FAERS Safety Report 19221649 (Version 2)
Quarter: 2021Q3

REPORT INFORMATION
  Report Type: Report from Study
  Country: PL (occurrence: PL)
  Receive Date: 20210506
  Receipt Date: 20210712
  Transmission Date: 20211014
  Serious: Yes (Hospitalization)
  Sender: FDA-Public Use
  Company Number: PL-CELGENEUS-POL-20210407579

PATIENT
  Age: 61 Year
  Sex: Female
  Weight: 62 kg

DRUGS (11)
  1. TORECAN [Concomitant]
     Active Substance: THIETHYLPERAZINE MALATE
     Indication: DIZZINESS
     Dosage: 6.5 MILLIGRAM
     Route: 054
     Dates: start: 20210419, end: 20210424
  2. NALGESIN [Concomitant]
     Indication: EAR PAIN
     Route: 048
     Dates: start: 20210415, end: 20210417
  3. BETAHISTINE [Concomitant]
     Active Substance: BETAHISTINE
     Indication: PRODUCT USED FOR UNKNOWN INDICATION
     Dosage: 24 MILLIGRAM
     Route: 065
     Dates: start: 20210419, end: 20210424
  4. BETASERCA [Concomitant]
     Indication: DIZZINESS
     Route: 048
     Dates: start: 20210420, end: 20210427
  5. NAPROXEN. [Concomitant]
     Active Substance: NAPROXEN
     Indication: PRODUCT USED FOR UNKNOWN INDICATION
     Dosage: 1100 MILLIGRAM
     Route: 065
     Dates: start: 20210416, end: 20210417
  6. CARFILZOMIB [Suspect]
     Active Substance: CARFILZOMIB
     Indication: PLASMA CELL MYELOMA
     Route: 065
  7. DEXAMETHASONE. [Suspect]
     Active Substance: DEXAMETHASONE
     Indication: PLASMA CELL MYELOMA
     Route: 065
  8. REVLIMID [Suspect]
     Active Substance: LENALIDOMIDE
     Indication: PLASMA CELL MYELOMA
     Dosage: 10 MILLIGRAM
     Route: 048
     Dates: start: 20210331, end: 20210415
  9. TORECAN [Concomitant]
     Active Substance: THIETHYLPERAZINE MALATE
     Indication: VOMITING
     Dosage: 6 MILLIGRAM
     Route: 054
     Dates: start: 20210420, end: 20210420
  10. XORIMAX [Concomitant]
     Active Substance: CEFUROXIME AXETIL
     Indication: EAR INFECTION
     Route: 048
     Dates: start: 20210415, end: 20210419
  11. CEFUROXIME. [Concomitant]
     Active Substance: CEFUROXIME
     Indication: PRODUCT USED FOR UNKNOWN INDICATION
     Dosage: 1000 MILLIGRAM
     Route: 065
     Dates: start: 20210416, end: 20210418

REACTIONS (3)
  - SARS-CoV-2 test positive [Recovered/Resolved]
  - Anaemia [Recovering/Resolving]
  - Thrombocytopenia [Recovering/Resolving]

NARRATIVE: CASE EVENT DATE: 20210415
